FAERS Safety Report 18266925 (Version 5)
Quarter: 2021Q1

REPORT INFORMATION
  Report Type: Report from Study
  Country: US (occurrence: US)
  Receive Date: 20200915
  Receipt Date: 20210330
  Transmission Date: 20210419
  Serious: Yes (Other)
  Sender: FDA-Public Use
  Company Number: US-SHIRE-US202029979

PATIENT
  Age: 48 Year
  Sex: Female

DRUGS (6)
  1. PARATHYROID HORMONE [Suspect]
     Active Substance: PARATHYROID HORMONE
     Dosage: 75 MICROGRAM, QD
     Route: 050
     Dates: start: 201505
  2. PARATHYROID HORMONE [Suspect]
     Active Substance: PARATHYROID HORMONE
     Indication: PRODUCT USED FOR UNKNOWN INDICATION
     Dosage: 100 MICROGRAM, QD
     Route: 050
     Dates: start: 201505
  3. PARATHYROID HORMONE [Suspect]
     Active Substance: PARATHYROID HORMONE
     Indication: PRODUCT USED FOR UNKNOWN INDICATION
     Dosage: 100 MICROGRAM, QD
     Route: 050
     Dates: start: 201505
  4. PARATHYROID HORMONE [Suspect]
     Active Substance: PARATHYROID HORMONE
     Dosage: 75 MICROGRAM, QD
     Route: 050
     Dates: start: 201505
  5. PARATHYROID HORMONE [Suspect]
     Active Substance: PARATHYROID HORMONE
     Dosage: 75 MICROGRAM, QD
     Route: 050
     Dates: start: 201505
  6. PARATHYROID HORMONE [Suspect]
     Active Substance: PARATHYROID HORMONE
     Indication: PRODUCT USED FOR UNKNOWN INDICATION
     Dosage: 100 MICROGRAM, QD
     Route: 050
     Dates: start: 201505

REACTIONS (12)
  - Foot fracture [Unknown]
  - Blood potassium decreased [Unknown]
  - Fatigue [Unknown]
  - Blood calcium decreased [Unknown]
  - Stress [Unknown]
  - Pain [Unknown]
  - Emotional distress [Unknown]
  - Neck surgery [Recovering/Resolving]
  - Recalled product [Unknown]
  - COVID-19 [Unknown]
  - Fibromyalgia [Unknown]
  - Dehydration [Unknown]

NARRATIVE: CASE EVENT DATE: 20190317
